FAERS Safety Report 15980115 (Version 1)
Quarter: 2019Q1

REPORT INFORMATION
  Report Type: Spontaneous
  Country: US (occurrence: US)
  Receive Date: 20190218
  Receipt Date: 20190218
  Transmission Date: 20190418
  Serious: No
  Sender: FDA-Public Use
  Company Number: None

PATIENT
  Age: 73 Year
  Sex: Female
  Weight: 67 kg

DRUGS (1)
  1. CARBOPLATIN. [Suspect]
     Active Substance: CARBOPLATIN
     Indication: PAPILLARY SEROUS ENDOMETRIAL CARCINOMA
     Route: 040

REACTIONS (6)
  - Infusion related reaction [None]
  - Sneezing [None]
  - Epigastric discomfort [None]
  - Nausea [None]
  - Feeling hot [None]
  - Abdominal discomfort [None]

NARRATIVE: CASE EVENT DATE: 20181210
